FAERS Safety Report 7508926-7 (Version None)
Quarter: 2011Q2

REPORT INFORMATION
  Report Type: 
  Country: None (occurrence: None)
  Receive Date: 20110527
  Receipt Date: 20110404
  Transmission Date: 20111010
  Serious: No
  Sender: FDA-Public Use
  Company Number: US-MYLANLABS-2011S1005822

PATIENT
  Age: 59 Year
  Sex: Female

DRUGS (12)
  1. BYSTOLIC [Concomitant]
  2. ARIMIDEX [Concomitant]
  3. DIAMOX [Concomitant]
  4. SUMATRIPTAN SUCCINATE [Suspect]
     Indication: MIGRAINE
     Dosage: 100MG AT ONSET, THEN 100MG MAY BE TAKEN WITHIN 2 HOURS. MAX DOSE 3 TABS/WK
     Route: 048
     Dates: start: 20100114, end: 20110205
  5. MAGNESIUM OXIDE [Concomitant]
  6. SUMATRIPTAN SUCCINATE [Suspect]
     Dosage: 100MG AT ONSET, THEN 100MG MAY BE TAKEN WITHIN 2 HOURS. MAX DOSE 3 TABS/WK
     Route: 048
     Dates: start: 20100114, end: 20110205
  7. VICODIN [Concomitant]
  8. INDOMETHACIN [Concomitant]
  9. PRISTIQ [Concomitant]
  10. SIMVASTATIN [Concomitant]
  11. CAMBIA [Concomitant]
  12. LIDODERM [Concomitant]

REACTIONS (2)
  - DRUG INEFFECTIVE [None]
  - MIGRAINE [None]
